FAERS Safety Report 13339186 (Version 1)
Quarter: 2017Q1

REPORT INFORMATION
  Report Type: Spontaneous
  Country: US (occurrence: US)
  Receive Date: 20170315
  Receipt Date: 20170315
  Transmission Date: 20170428
  Serious: No
  Sender: FDA-Public Use
  Company Number: US-PFIZER INC-2017113994

PATIENT
  Age: 39 Year
  Sex: Female
  Weight: 92.99 kg

DRUGS (2)
  1. GABAPENTIN. [Suspect]
     Active Substance: GABAPENTIN
     Indication: NEURALGIA
  2. GABAPENTIN. [Suspect]
     Active Substance: GABAPENTIN
     Indication: PAIN
     Dosage: 600MG, 3 TIMES PER DAY

REACTIONS (2)
  - Movement disorder [Unknown]
  - Drug ineffective for unapproved indication [Unknown]
